FAERS Safety Report 7404869-8 (Version None)
Quarter: 2011Q2

REPORT INFORMATION
  Report Type: 
  Country: None (occurrence: None)
  Receive Date: 20110411
  Receipt Date: 20110401
  Transmission Date: 20111010
  Serious: Yes (Other)
  Sender: FDA-Public Use
  Company Number: US-US-EMD SERONO, INC.-7051843

PATIENT
  Sex: Female

DRUGS (5)
  1. VESICARE [Concomitant]
     Indication: BLADDER DISORDER
  2. ATENOLOL [Concomitant]
     Indication: BLOOD PRESSURE
  3. HYZAAR [Concomitant]
     Indication: BLOOD PRESSURE
  4. REBIF [Suspect]
     Indication: MULTIPLE SCLEROSIS
     Route: 058
     Dates: start: 20090313
  5. LIPITOR [Concomitant]
     Indication: BLOOD CHOLESTEROL

REACTIONS (2)
  - SPINAL DISORDER [None]
  - VOMITING [None]
